FAERS Safety Report 9125301 (Version 3)
Quarter: 2013Q2

REPORT INFORMATION
  Report Type: Spontaneous
  Country: US (occurrence: US)
  Receive Date: 20130227
  Receipt Date: 20130416
  Transmission Date: 20140414
  Serious: Yes (Death, Other)
  Sender: FDA-Public Use
  Company Number: PHEH2013US004686

PATIENT
  Age: 40 Year
  Sex: Female
  Weight: 56.69 kg

DRUGS (13)
  1. GILENYA [Suspect]
     Indication: MULTIPLE SCLEROSIS
     Dosage: 0.5 MG, QD
     Route: 048
     Dates: start: 201106, end: 20130129
  2. VITAMIN D3 [Concomitant]
     Indication: MULTIPLE SCLEROSIS
     Dosage: 2000 U, QD
  3. CITALOPRAM [Concomitant]
     Indication: DEPRESSION
     Dosage: 40 MG, QID
     Route: 048
  4. XANAX [Concomitant]
     Indication: ANXIETY
     Dosage: 0.5 MG, (1-2 PER DAY)
  5. BACLOFEN [Concomitant]
     Indication: MUSCLE SPASTICITY
     Dosage: 20 MG, QD
     Route: 048
  6. TRILIPIX [Concomitant]
     Indication: HYPERLIPIDAEMIA
     Dosage: UNK UKN, UNK
     Route: 048
  7. ZOLPIDEM [Concomitant]
  8. ALPRAZOLAM [Concomitant]
  9. NEXIUM [Concomitant]
  10. IRON [Concomitant]
  11. FIORICET [Concomitant]
  12. CELEXA [Concomitant]
  13. LIORESAL [Concomitant]

REACTIONS (37)
  - Cardiac arrest [Fatal]
  - Multi-organ failure [Fatal]
  - Acute respiratory failure [Fatal]
  - Respiratory arrest [Fatal]
  - Renal failure acute [Fatal]
  - Respiratory distress [Fatal]
  - Haemoptysis [Fatal]
  - Haematemesis [Fatal]
  - Shock haemorrhagic [Fatal]
  - Pulmonary haemorrhage [Fatal]
  - Pulmonary congestion [Fatal]
  - Pleural effusion [Fatal]
  - Pneumonia [Fatal]
  - Aspiration [Fatal]
  - Sepsis [Fatal]
  - Septic shock [Fatal]
  - Anaemia [Fatal]
  - Pancytopenia [Fatal]
  - Cardiac ventricular disorder [Fatal]
  - Sinus tachycardia [Fatal]
  - Brain natriuretic peptide increased [Unknown]
  - Acinetobacter infection [Unknown]
  - Staphylococcal infection [Unknown]
  - Streptococcal infection [Unknown]
  - Blood bicarbonate decreased [Unknown]
  - Blood albumin decreased [Unknown]
  - Computerised tomogram abnormal [Unknown]
  - Body temperature decreased [Unknown]
  - Red blood cell count decreased [Unknown]
  - Respiratory rate increased [Unknown]
  - Blood potassium decreased [Unknown]
  - Heart rate increased [Unknown]
  - Haemoglobin decreased [Unknown]
  - Platelet count decreased [Unknown]
  - Blood creatinine increased [Unknown]
  - White blood cell count decreased [Unknown]
  - Lymphocyte count decreased [Unknown]
